FAERS Safety Report 5271875-1 (Version None)
Quarter: 2007Q1

REPORT INFORMATION
  Report Type: 
  Country: None (occurrence: None)
  Receive Date: 20070316
  Receipt Date: 20070302
  Transmission Date: 20070707
  Serious: Yes (Death, Hospitalization)
  Sender: FDA-Public Use
  Company Number: 2006001987

PATIENT
  Age: 44 Year
  Sex: Female

DRUGS (3)
  1. ERLOTINIB (TABLET) (ERLOTINIB HCL) [Suspect]
     Indication: PANCREATIC CARCINOMA METASTATIC
     Dosage: 100 MG (QD); ORAL
     Route: 048
     Dates: start: 20060731, end: 20061003
  2. BEVACIZUMAB (INJECTION FOR INFUSION) [Suspect]
     Indication: PANCREATIC CARCINOMA METASTATIC
     Dosage: UNK (1 X PER 2 WEEK); INTRAVENOUS
     Route: 042
     Dates: start: 20060731, end: 20061003
  3. GEMCITABINE [Suspect]
     Indication: PANCREATIC CARCINOMA METASTATIC
     Dosage: 1594 MG (1 X PER WEEK); INTRAVENOUS
     Route: 042
     Dates: start: 20060731, end: 20060913

REACTIONS (3)
  - CEREBRAL ARTERY EMBOLISM [None]
  - COAGULOPATHY [None]
  - METASTASES TO CENTRAL NERVOUS SYSTEM [None]
